FAERS Safety Report 10795457 (Version 1)
Quarter: 2015Q1

REPORT INFORMATION
  Report Type: Spontaneous
  Country: US (occurrence: US)
  Receive Date: 20150215
  Receipt Date: 20150215
  Transmission Date: 20150721
  Serious: Yes (Death, Hospitalization, Other)
  Sender: FDA-Public Use
  Company Number: US-ACTAVIS-2015-01836

PATIENT
  Age: 12 Month
  Sex: Female
  Weight: 10 kg

DRUGS (1)
  1. DIPHENHYDRAMINE (WATSON LABORATORIES) [Suspect]
     Active Substance: DIPHENHYDRAMINE
     Indication: ACCIDENTAL EXPOSURE TO PRODUCT BY CHILD
     Dosage: 50 MG, UNKNOWN
     Route: 048

REACTIONS (10)
  - Blood creatine phosphokinase increased [Unknown]
  - Electrocardiogram QRS complex prolonged [Unknown]
  - Accidental exposure to product by child [Fatal]
  - Tachycardia [Unknown]
  - Seizure [Recovered/Resolved]
  - Vomiting [Unknown]
  - Bradycardia [Fatal]
  - Irritability [Unknown]
  - Electrocardiogram ST segment elevation [Unknown]
  - Ventricular extrasystoles [Unknown]
